FAERS Safety Report 18440474 (Version 1)
Quarter: 2020Q4

REPORT INFORMATION
  Report Type: Report from Study
  Country: IT (occurrence: IT)
  Receive Date: 20201029
  Receipt Date: 20201029
  Transmission Date: 20210114
  Serious: Yes (Other)
  Sender: FDA-Public Use
  Company Number: IT-VIIV HEALTHCARE LIMITED-IT2020GSK214977

PATIENT
  Age: 54 Year
  Sex: Female

DRUGS (2)
  1. INTERFERON ALFA-N1. [Suspect]
     Active Substance: INTERFERON ALFA-N1
     Indication: HUMAN T-CELL LYMPHOTROPIC VIRUS TYPE I INFECTION
     Dosage: UNK (5 MILLION IU/M2 PER DAY)
  2. ZIDOVUDINE. [Suspect]
     Active Substance: ZIDOVUDINE
     Indication: HUMAN T-CELL LYMPHOTROPIC VIRUS TYPE I INFECTION
     Dosage: 900 MG, 1D
     Dates: start: 2002

REACTIONS (1)
  - Pathogen resistance [Unknown]
